FAERS Safety Report 25183192 (Version 1)
Quarter: 2025Q2

REPORT INFORMATION
  Report Type: Spontaneous
  Country: IT (occurrence: IT)
  Receive Date: 20250410
  Receipt Date: 20250410
  Transmission Date: 20250717
  Serious: Yes (Hospitalization)
  Sender: MYLAN
  Company Number: IT-MYLANLABS-2025M1030540

PATIENT
  Age: 51 Year
  Sex: Female

DRUGS (16)
  1. ACETAMINOPHEN [Suspect]
     Active Substance: ACETAMINOPHEN
     Indication: Pyrexia
     Dosage: 6 GRAM, QD (ABOUT 6G/DAY)
  2. ACETAMINOPHEN [Suspect]
     Active Substance: ACETAMINOPHEN
     Indication: Cough
     Dosage: 6 GRAM, QD (ABOUT 6G/DAY)
     Route: 065
  3. ACETAMINOPHEN [Suspect]
     Active Substance: ACETAMINOPHEN
     Dosage: 6 GRAM, QD (ABOUT 6G/DAY)
     Route: 065
  4. ACETAMINOPHEN [Suspect]
     Active Substance: ACETAMINOPHEN
     Dosage: 6 GRAM, QD (ABOUT 6G/DAY)
  5. MEROPENEM [Concomitant]
     Active Substance: MEROPENEM
     Indication: Toxicity to various agents
  6. MEROPENEM [Concomitant]
     Active Substance: MEROPENEM
     Route: 065
  7. MEROPENEM [Concomitant]
     Active Substance: MEROPENEM
     Route: 065
  8. MEROPENEM [Concomitant]
     Active Substance: MEROPENEM
  9. ACETYLCYSTEINE [Concomitant]
     Active Substance: ACETYLCYSTEINE
     Indication: Toxicity to various agents
  10. ACETYLCYSTEINE [Concomitant]
     Active Substance: ACETYLCYSTEINE
     Route: 065
  11. ACETYLCYSTEINE [Concomitant]
     Active Substance: ACETYLCYSTEINE
     Route: 065
  12. ACETYLCYSTEINE [Concomitant]
     Active Substance: ACETYLCYSTEINE
  13. URSODIOL [Concomitant]
     Active Substance: URSODIOL
     Indication: Toxicity to various agents
  14. URSODIOL [Concomitant]
     Active Substance: URSODIOL
     Route: 065
  15. URSODIOL [Concomitant]
     Active Substance: URSODIOL
     Route: 065
  16. URSODIOL [Concomitant]
     Active Substance: URSODIOL

REACTIONS (13)
  - Overdose [Recovering/Resolving]
  - Toxicity to various agents [Recovering/Resolving]
  - Periportal oedema [Recovering/Resolving]
  - Renal tubular necrosis [Recovering/Resolving]
  - Pleural effusion [Recovering/Resolving]
  - Gallbladder oedema [Recovering/Resolving]
  - Blood sodium decreased [Recovering/Resolving]
  - Blood potassium increased [Recovering/Resolving]
  - Renal impairment [Recovering/Resolving]
  - Hepatic function abnormal [Recovering/Resolving]
  - Metabolic acidosis [Recovering/Resolving]
  - Anaemia [Recovering/Resolving]
  - Thrombocytopenia [Recovering/Resolving]
